FAERS Safety Report 9566726 (Version 1)
Quarter: 2013Q3

REPORT INFORMATION
  Report Type: Spontaneous
  Country: US (occurrence: US)
  Receive Date: 20130930
  Receipt Date: 20130930
  Transmission Date: 20140515
  Serious: No
  Sender: FDA-Public Use
  Company Number: US-AMGEN-USASP2012067514

PATIENT
  Age: 63 Year
  Sex: Male
  Weight: 117.1 kg

DRUGS (10)
  1. ENBREL [Suspect]
     Indication: RHEUMATOID ARTHRITIS
     Dosage: UNK
     Route: 058
     Dates: end: 20121010
  2. DIOVAN [Concomitant]
     Dosage: UNK
  3. FELODIPINE [Concomitant]
     Dosage: UNK
  4. LEFLUNOMIDE [Concomitant]
     Dosage: UNK
  5. METOPROLOL [Concomitant]
     Dosage: UNK
  6. ORENCIA [Concomitant]
     Dosage: UNK
  7. PREDNISONE [Concomitant]
     Dosage: UNK
  8. TYLENOL PM [Concomitant]
     Dosage: UNK
  9. VICODIN [Concomitant]
     Dosage: UNK
  10. VITAMIN D                          /00107901/ [Concomitant]
     Dosage: UNK

REACTIONS (1)
  - Drug ineffective [Unknown]
